FAERS Safety Report 11805891 (Version 2)
Quarter: 2016Q1

REPORT INFORMATION
  Report Type: Spontaneous
  Country: US (occurrence: US)
  Receive Date: 20151207
  Receipt Date: 20160229
  Transmission Date: 20160525
  Serious: No
  Sender: FDA-Public Use
  Company Number: US-009507513-1512USA001860

PATIENT
  Sex: Male
  Weight: 128 kg

DRUGS (1)
  1. KEYTRUDA [Suspect]
     Active Substance: PEMBROLIZUMAB
     Indication: MALIGNANT MELANOMA
     Dosage: 50 MG, VIAL
     Route: 042
     Dates: end: 201511

REACTIONS (2)
  - Lymphadenopathy [Not Recovered/Not Resolved]
  - Malignant neoplasm progression [Recovered/Resolved]
